FAERS Safety Report 7135077-6 (Version None)
Quarter: 2010Q4

REPORT INFORMATION
  Report Type: 
  Country: None (occurrence: None)
  Receive Date: 20101203
  Receipt Date: 20101124
  Transmission Date: 20110411
  Serious: Yes (Hospitalization, Other)
  Sender: FDA-Public Use
  Company Number: US-TEVA-200993USA

PATIENT
  Sex: Female
  Weight: 105.33 kg

DRUGS (7)
  1. QUININE SULFATE [Suspect]
     Indication: MUSCLE SPASMS
     Dates: start: 20060101, end: 20080430
  2. CELECOXIB [Concomitant]
     Indication: ARTHRITIS
  3. ACETYL SALICYLIC ACID USP BAT [Concomitant]
  4. GLIBOMET [Concomitant]
     Indication: DIABETES MELLITUS
  5. PRINZIDE [Concomitant]
     Indication: HYPERTENSION
  6. GABAPENTIN [Concomitant]
     Indication: PAIN
  7. ALLOPURINOL [Concomitant]
     Indication: GOUT

REACTIONS (3)
  - BLOOD DISORDER [None]
  - GASTROINTESTINAL HAEMORRHAGE [None]
  - HAEMATEMESIS [None]
